FAERS Safety Report 12169338 (Version 1)
Quarter: 2016Q1

REPORT INFORMATION
  Report Type: Spontaneous
  Country: IT (occurrence: IT)
  Receive Date: 20160310
  Receipt Date: 20160310
  Transmission Date: 20160526
  Serious: Yes (Hospitalization)
  Sender: FDA-Public Use
  Company Number: IT-SA-2016SA045342

PATIENT
  Age: 50 Year
  Sex: Male

DRUGS (8)
  1. LEVEMIR [Concomitant]
     Active Substance: INSULIN DETEMIR
     Indication: DIABETES MELLITUS
     Dates: start: 20151201, end: 20160301
  2. PANTOPRAZOLE [Concomitant]
     Active Substance: PANTOPRAZOLE SODIUM
     Dates: start: 20151201, end: 20160301
  3. ZYLORIC [Concomitant]
     Active Substance: ALLOPURINOL
     Dosage: DIVISIBLE TABLETS
     Dates: start: 20151201, end: 20160301
  4. LASIX [Suspect]
     Active Substance: FUROSEMIDE
     Indication: HYPERTENSION
     Route: 048
     Dates: start: 20160105, end: 20160121
  5. CATAPRESAN [Concomitant]
     Active Substance: CLONIDINE
     Indication: HYPERTENSION
     Route: 062
     Dates: start: 20151201, end: 20160301
  6. ZAROXOLYN [Suspect]
     Active Substance: METOLAZONE
     Indication: HYPERTENSION
     Route: 048
     Dates: start: 20160105, end: 20160121
  7. NOVORAPID [Concomitant]
     Active Substance: INSULIN ASPART
     Indication: DIABETES MELLITUS
     Dates: start: 20151201, end: 20160301
  8. DIAZEPAM. [Concomitant]
     Active Substance: DIAZEPAM
     Dosage: ORAL DROPS; 1 VIAL OF 20 ML DOSE:5 MILLIGRAM(S)/MILLILITRE
     Route: 048
     Dates: start: 20160103, end: 20160301

REACTIONS (2)
  - Metabolic disorder [Recovering/Resolving]
  - Blood sodium decreased [Recovering/Resolving]

NARRATIVE: CASE EVENT DATE: 20160121
